FAERS Safety Report 22148525 (Version 2)
Quarter: 2023Q1

REPORT INFORMATION
  Report Type: Report from Study
  Country: US (occurrence: US)
  Receive Date: 20230328
  Receipt Date: 20230329
  Transmission Date: 20230417
  Serious: Yes (Other)
  Sender: FDA-Public Use
  Company Number: US-SANOFI-00967415

PATIENT
  Age: 52 Year
  Sex: Female

DRUGS (3)
  1. ALEMTUZUMAB [Suspect]
     Active Substance: ALEMTUZUMAB
     Indication: Multiple sclerosis
     Dosage: 12 MG, QD
     Route: 042
     Dates: start: 20160229, end: 20160304
  2. ALEMTUZUMAB [Suspect]
     Active Substance: ALEMTUZUMAB
     Dosage: 12 MG, QD
     Route: 042
     Dates: start: 20190116, end: 20190121
  3. ALEMTUZUMAB [Suspect]
     Active Substance: ALEMTUZUMAB
     Dosage: 12 MG, QD
     Route: 042
     Dates: start: 20170405, end: 20170407

REACTIONS (2)
  - Basedow^s disease [Not Recovered/Not Resolved]
  - Anti-thyroid antibody positive [Not Recovered/Not Resolved]

NARRATIVE: CASE EVENT DATE: 20220101
